FAERS Safety Report 14972575 (Version 1)
Quarter: 2018Q2

REPORT INFORMATION
  Report Type: Spontaneous
  Country: US (occurrence: US)
  Receive Date: 20180605
  Receipt Date: 20180605
  Transmission Date: 20180711
  Serious: No
  Sender: FDA-Public Use
  Company Number: US-ASTRAZENECA-2018SE69999

PATIENT
  Sex: Female
  Weight: 72.1 kg

DRUGS (14)
  1. SYNTHROID [Concomitant]
     Active Substance: LEVOTHYROXINE SODIUM
     Indication: THYROID DISORDER
     Route: 048
  2. LASIX [Concomitant]
     Active Substance: FUROSEMIDE
     Indication: SWELLING
     Dosage: 40.0MG AS REQUIRED
  3. HYDROCODENE [Concomitant]
     Indication: PAIN IN EXTREMITY
     Route: 048
  4. ASPRIN [Concomitant]
     Active Substance: ASPIRIN
     Indication: CARDIAC DISORDER
  5. DALIRESP [Suspect]
     Active Substance: ROFLUMILAST
     Indication: CHRONIC OBSTRUCTIVE PULMONARY DISEASE
     Route: 048
  6. COREG [Concomitant]
     Active Substance: CARVEDILOL
     Indication: CARDIAC DISORDER
     Route: 048
  7. DIAZEPAM. [Concomitant]
     Active Substance: DIAZEPAM
     Indication: SLEEP DISORDER
     Dosage: 5.0MG AS REQUIRED
     Route: 048
  8. SINGULAIT [Concomitant]
     Indication: MULTIPLE ALLERGIES
     Dosage: 10.0MG AS REQUIRED
  9. TUDORZA PRESSAIR [Suspect]
     Active Substance: ACLIDINIUM BROMIDE
     Indication: CHRONIC OBSTRUCTIVE PULMONARY DISEASE
     Route: 055
  10. VENTOLIN [Concomitant]
     Active Substance: ALBUTEROL SULFATE
     Indication: ILL-DEFINED DISORDER
  11. THEO-24 ER [Concomitant]
     Indication: CHRONIC OBSTRUCTIVE PULMONARY DISEASE
     Route: 048
  12. CLOPIDOGREL [Concomitant]
     Active Substance: CLOPIDOGREL BISULFATE
     Indication: CARDIAC DISORDER
     Route: 048
  13. ALLERGA [Concomitant]
     Indication: MULTIPLE ALLERGIES
  14. AFRIN [Concomitant]
     Active Substance: OXYMETAZOLINE
     Route: 045

REACTIONS (15)
  - Dyspnoea [Unknown]
  - Cardiac disorder [Unknown]
  - Stress [Unknown]
  - Crying [Unknown]
  - Depression [Unknown]
  - Herpes zoster [Unknown]
  - Abdominal discomfort [Unknown]
  - Thyroid function test abnormal [Unknown]
  - Pruritus [Recovered/Resolved]
  - Chronic obstructive pulmonary disease [Unknown]
  - Arthralgia [Not Recovered/Not Resolved]
  - Drug ineffective [Unknown]
  - Thinking abnormal [Unknown]
  - Insomnia [Unknown]
  - Pain in extremity [Not Recovered/Not Resolved]
